FAERS Safety Report 9613506 (Version 1)
Quarter: 2013Q4

REPORT INFORMATION
  Report Type: Spontaneous
  Country: GB (occurrence: None)
  Receive Date: 20131008
  Receipt Date: 20131008
  Transmission Date: 20140711
  Serious: Yes (Other)
  Sender: FDA-Public Use
  Company Number: AUR-APL-2013-08045

PATIENT
  Age: 62 Year
  Sex: Male

DRUGS (3)
  1. RIBAVIRIN (RIBAVIRIN) [Suspect]
     Indication: HEPATITIS
  2. INTERFERON (INTERFERON) [Suspect]
     Indication: HEPATITIS
  3. TELAPREVIR (TELAPREVIR) [Suspect]
     Indication: HEPATITIS
     Dosage: 1687.5 MG (1125 MG,3 IN 2 D), UNKNOWN

REACTIONS (1)
  - Renal failure acute [None]
